FAERS Safety Report 17581177 (Version 1)
Quarter: 2020Q1

REPORT INFORMATION
  Report Type: Spontaneous
  Country: US (occurrence: US)
  Receive Date: 20200325
  Receipt Date: 20200325
  Transmission Date: 20200409
  Serious: Yes (Disabling)
  Sender: FDA-Public Use
  Company Number: None

PATIENT
  Age: 62 Year
  Sex: Female
  Weight: 54 kg

DRUGS (5)
  1. TRAVATAN [Concomitant]
     Active Substance: TRAVOPROST
  2. ELIQUIS [Concomitant]
     Active Substance: APIXABAN
  3. VASCEPA [Suspect]
     Active Substance: ICOSAPENT ETHYL
     Indication: BLOOD CHOLESTEROL INCREASED
     Dosage: ?          QUANTITY:1 CAPSULE(S);?
     Route: 048
  4. PRALUENT [Concomitant]
     Active Substance: ALIROCUMAB
     Dosage: 2/MONTH
  5. METOPROLOL ER 100MG [Concomitant]

REACTIONS (1)
  - Atrial fibrillation [None]

NARRATIVE: CASE EVENT DATE: 20190601
